FAERS Safety Report 23326309 (Version 1)
Quarter: 2023Q4

REPORT INFORMATION
  Report Type: Spontaneous
  Country: FR (occurrence: FR)
  Receive Date: 20231221
  Receipt Date: 20231221
  Transmission Date: 20240110
  Serious: Yes (Death, Life-Threatening, Other)
  Sender: FDA-Public Use
  Company Number: None

PATIENT
  Age: 62 Year
  Sex: Male

DRUGS (17)
  1. NAPROXEN [Interacting]
     Active Substance: NAPROXEN
     Indication: Back pain
     Route: 050
     Dates: start: 20231013
  2. MEDROL [Interacting]
     Active Substance: METHYLPREDNISOLONE
     Indication: Back pain
     Route: 050
     Dates: start: 20231017, end: 20231021
  3. MEDROL [Interacting]
     Active Substance: METHYLPREDNISOLONE
     Route: 050
     Dates: start: 20231022, end: 20231026
  4. MEDROL [Interacting]
     Active Substance: METHYLPREDNISOLONE
     Route: 050
     Dates: start: 20231013, end: 20231016
  5. KARDEGIC [Interacting]
     Active Substance: ASPIRIN DL-LYSINE
     Indication: Cardiovascular event prophylaxis
     Route: 050
     Dates: start: 2023, end: 2023
  6. ARIXTRA [Interacting]
     Active Substance: FONDAPARINUX SODIUM
     Indication: Infarction
     Dosage: ; IN TOTAL
     Route: 050
     Dates: start: 20231027, end: 2023
  7. DICLOFENAC [Interacting]
     Active Substance: DICLOFENAC
     Indication: Back pain
     Route: 050
     Dates: start: 20231013
  8. TICAGRELOR [Interacting]
     Active Substance: TICAGRELOR
     Indication: Infarction
     Dosage: ; IN TOTAL
     Route: 050
     Dates: start: 20231027, end: 20231027
  9. HEPARIN SODIUM [Interacting]
     Active Substance: HEPARIN SODIUM
     Indication: Infarction
     Route: 050
     Dates: start: 20231027, end: 2023
  10. ROSUVASTATIN [Concomitant]
     Active Substance: ROSUVASTATIN
     Indication: Product used for unknown indication
     Route: 050
  11. NITRENDIPINE [Concomitant]
     Active Substance: NITRENDIPINE
     Indication: Product used for unknown indication
     Route: 050
  12. DAPAGLIFLOZIN PROPANEDIOL [Concomitant]
     Active Substance: DAPAGLIFLOZIN PROPANEDIOL
     Indication: Product used for unknown indication
     Route: 050
  13. HYDROCHLOROTHIAZIDE [Concomitant]
     Active Substance: HYDROCHLOROTHIAZIDE
     Indication: Product used for unknown indication
     Route: 050
  14. KOMBOGLYZE 2,5 mg/1000 mg, comprime pellicule [Concomitant]
     Indication: Product used for unknown indication
     Dosage: 2.5MG/1000MG
     Route: 050
  15. CANDESARTAN CILEXETIL [Concomitant]
     Active Substance: CANDESARTAN CILEXETIL
     Indication: Product used for unknown indication
     Route: 050
  16. ACETAMINOPHEN\CAFFEINE [Concomitant]
     Active Substance: ACETAMINOPHEN\CAFFEINE
     Indication: Product used for unknown indication
  17. REPAGLINIDE [Concomitant]
     Active Substance: REPAGLINIDE
     Indication: Product used for unknown indication

REACTIONS (4)
  - Shock haemorrhagic [Fatal]
  - Gastroduodenal ulcer [Fatal]
  - Drug interaction [Fatal]
  - Pulmonary embolism [Fatal]

NARRATIVE: CASE EVENT DATE: 20231027
